FAERS Safety Report 5187930-0 (Version None)
Quarter: 2006Q4

REPORT INFORMATION
  Report Type: 
  Country: None (occurrence: None)
  Receive Date: 20061221
  Receipt Date: 20061214
  Transmission Date: 20070319
  Serious: Yes (Other)
  Sender: FDA-Public Use
  Company Number: JP-AVENTIS-200613905JP

PATIENT
  Age: 65 Year
  Sex: Female

DRUGS (2)
  1. LASIX [Suspect]
     Route: 048
  2. BI-SIFROL [Suspect]

REACTIONS (2)
  - PEMPHIGOID [None]
  - STEVENS-JOHNSON SYNDROME [None]
